FAERS Safety Report 4467075-5 (Version None)
Quarter: 2004Q4

REPORT INFORMATION
  Report Type: 
  Country: None (occurrence: None)
  Receive Date: 20041004
  Receipt Date: 20040924
  Transmission Date: 20050328
  Serious: Yes (Other)
  Sender: FDA-Public Use
  Company Number: 2004235570US

PATIENT
  Age: 85 Year
  Sex: Female
  Weight: 45.4 kg

DRUGS (1)
  1. CELEBREX [Suspect]
     Indication: ARTHRALGIA
     Dosage: ORAL
     Route: 048
     Dates: start: 20010101, end: 20010911

REACTIONS (2)
  - EYE HAEMORRHAGE [None]
  - VISUAL DISTURBANCE [None]
